FAERS Safety Report 10029451 (Version 2)
Quarter: 2014Q1

REPORT INFORMATION
  Report Type: Spontaneous
  Country: GB (occurrence: GB)
  Receive Date: 20140322
  Receipt Date: 20140322
  Transmission Date: 20141002
  Serious: Yes (Hospitalization, Other)
  Sender: FDA-Public Use
  Company Number: PHFR2013GB007038

PATIENT
  Age: 72 Year
  Sex: Male

DRUGS (7)
  1. CLOZARIL [Suspect]
     Indication: SCHIZOPHRENIA
     Dosage: UNK
     Route: 048
     Dates: start: 20090903
  2. CLOZARIL [Suspect]
     Indication: PARKINSON^S DISEASE
     Dosage: 25 MG, UNK
     Route: 048
     Dates: start: 201002, end: 20131103
  3. CLOZARIL [Suspect]
     Indication: PSYCHOTIC DISORDER
  4. CITALOPRAM [Concomitant]
     Indication: DEPRESSION
     Dosage: 20 MG, UNK
     Route: 048
     Dates: start: 2010
  5. RIVASTIGMINE [Concomitant]
     Indication: DEMENTIA
     Dosage: 9.5 MG, UNK
     Route: 062
     Dates: start: 2010
  6. STALEVO [Concomitant]
     Indication: PARKINSON^S DISEASE
     Dosage: 425 MG, UNK
     Route: 048
     Dates: start: 2012
  7. OMEPRAZOLE [Concomitant]
     Indication: GASTRITIS
     Dosage: 20 MG, UNK
     Route: 048
     Dates: start: 2009

REACTIONS (2)
  - Unresponsive to stimuli [Unknown]
  - Convulsion [Recovered/Resolved]
